FAERS Safety Report 11821213 (Version 1)
Quarter: 2015Q4

REPORT INFORMATION
  Report Type: Spontaneous
  Country: IT (occurrence: IT)
  Receive Date: 20151210
  Receipt Date: 20151210
  Transmission Date: 20160305
  Serious: Yes (Other)
  Sender: FDA-Public Use
  Company Number: PHHY2015IT159401

PATIENT
  Age: 70 Year
  Sex: Female
  Weight: 62 kg

DRUGS (3)
  1. DEXAMETHASONE. [Concomitant]
     Active Substance: DEXAMETHASONE
     Indication: PRODUCT USED FOR UNKNOWN INDICATION
     Dosage: 128 TO 256 DROPS, 1 POS. UNIT (U), BID (TWICE, BEFORE AND AFTER CHEMOTHERAPY)
     Route: 048
     Dates: start: 20140730, end: 20150730
  2. ZOMETA [Suspect]
     Active Substance: ZOLEDRONIC ACID
     Indication: METASTASES TO BONE
     Dosage: 4 MG, EVERY 6 WEEKS
     Route: 042
     Dates: start: 20140730, end: 20141212
  3. TAXOTERE [Concomitant]
     Active Substance: DOCETAXEL
     Indication: PRODUCT USED FOR UNKNOWN INDICATION
     Dosage: 75 MG/M2 BODY SURFACE
     Route: 042
     Dates: start: 20140730, end: 20150102

REACTIONS (6)
  - Oral cavity fistula [Recovering/Resolving]
  - Oral pain [Recovering/Resolving]
  - Exposed bone in jaw [Unknown]
  - Erythema [Unknown]
  - Osteonecrosis of jaw [Recovering/Resolving]
  - Secretion discharge [Unknown]

NARRATIVE: CASE EVENT DATE: 20150102
